FAERS Safety Report 4900046-0 (Version None)
Quarter: 2006Q1

REPORT INFORMATION
  Report Type: 
  Country: None (occurrence: None)
  Receive Date: 20060203
  Receipt Date: 20060125
  Transmission Date: 20060701
  Serious: Yes (Hospitalization)
  Sender: FDA-Public Use
  Company Number: FR-BOEHRINGER INGELHEIM PHARMACEUTICALS, INC.-2006-FF-00056FF

PATIENT
  Age: 57 Year
  Sex: Female

DRUGS (6)
  1. ATROVENT [Suspect]
     Indication: ASTHMA
     Route: 002
     Dates: start: 20000101
  2. BRICANYL [Concomitant]
     Indication: ASTHMA
     Dosage: ONE PUFF MORNING AND NIGHT
     Route: 002
     Dates: start: 20000101
  3. EFFERALGAN [Concomitant]
     Dosage: UP TO 3 G A DAY
     Route: 048
  4. FLIXOTIDE [Concomitant]
     Indication: ASTHMA
     Dosage: ONE PUFF TWO TIMES A DAY
     Route: 002
     Dates: start: 20000101
  5. SINGULAIR [Concomitant]
     Indication: ASTHMA
     Route: 048
     Dates: start: 20030101, end: 20050901
  6. ATARAX [Concomitant]
     Indication: ANXIETY
     Route: 048

REACTIONS (1)
  - ALLERGIC GRANULOMATOUS ANGIITIS [None]
